FAERS Safety Report 7350765-4 (Version None)
Quarter: 2011Q1

REPORT INFORMATION
  Report Type: 
  Country: None (occurrence: None)
  Receive Date: 20110314
  Receipt Date: 20110304
  Transmission Date: 20110831
  Serious: Yes (Other)
  Sender: FDA-Public Use
  Company Number: JP-JNJFOC-20110303695

PATIENT

DRUGS (3)
  1. ITRACONAZOLE [Suspect]
     Indication: URINARY TRACT INFECTION
     Route: 041
  2. ITRACONAZOLE [Suspect]
     Route: 048
  3. UNKNOWN MEDICATION [Concomitant]
     Route: 065

REACTIONS (2)
  - ELECTROCARDIOGRAM ABNORMAL [None]
  - BRADYCARDIA [None]
